FAERS Safety Report 14660337 (Version 1)
Quarter: 2018Q1

REPORT INFORMATION
  Report Type: Report from Study
  Country: BR (occurrence: BR)
  Receive Date: 20180320
  Receipt Date: 20180320
  Transmission Date: 20180509
  Serious: Yes (Other)
  Sender: FDA-Public Use
  Company Number: BR-BAYER-2018-051042

PATIENT
  Age: 65 Year
  Sex: Male

DRUGS (9)
  1. ESCITALOPRAM [Concomitant]
     Active Substance: ESCITALOPRAM OXALATE
     Indication: DEPRESSION
     Dosage: 1 DF, QD
  2. BUSCOPAN [Concomitant]
     Active Substance: BUTYLSCOPOLAMINE BROMIDE
     Indication: ABDOMINAL PAIN
  3. LACTULOSE. [Concomitant]
     Active Substance: LACTULOSE
  4. STIVARGA [Suspect]
     Active Substance: REGORAFENIB
     Indication: GASTROINTESTINAL STROMAL TUMOUR
     Dosage: 80 MG, QD
     Dates: start: 20180305, end: 201803
  5. MORFINE [Concomitant]
     Active Substance: MORPHINE
     Indication: ABDOMINAL PAIN
     Dosage: 1 TIME A DAY AT NIGHT
  6. OMEPRAZOL [Concomitant]
     Active Substance: OMEPRAZOLE
  7. STIVARGA [Suspect]
     Active Substance: REGORAFENIB
     Indication: HEPATIC CANCER
     Dosage: 120 MG, QD (2 PILLS IN THE MORNING AND 1 PILL IN THE NIGHT)
  8. PLASIL [Concomitant]
     Active Substance: METOCLOPRAMIDE HYDROCHLORIDE
  9. BUSCOPAN [Concomitant]
     Active Substance: BUTYLSCOPOLAMINE BROMIDE
     Indication: ABDOMINAL DISCOMFORT
     Dosage: UNK UNK, PRN

REACTIONS (8)
  - Blood pressure fluctuation [Not Recovered/Not Resolved]
  - Hypertension [Unknown]
  - Decreased appetite [None]
  - Blood test abnormal [None]
  - Somnolence [Not Recovered/Not Resolved]
  - Pruritus [Unknown]
  - Skin lesion [Recovered/Resolved]
  - Off label use [None]

NARRATIVE: CASE EVENT DATE: 20180313
